FAERS Safety Report 7258766-1 (Version None)
Quarter: 2011Q1

REPORT INFORMATION
  Report Type: 
  Country: None (occurrence: None)
  Receive Date: 20110129
  Receipt Date: 20100601
  Transmission Date: 20110831
  Serious: No
  Sender: FDA-Public Use
  Company Number: US-ABBOTT-10P-163-0648288-00

PATIENT
  Age: 59 Year
  Sex: Female

DRUGS (10)
  1. AZATHIOPRINE [Concomitant]
     Indication: ARTHRITIS
  2. MULTI-VITAMIN [Concomitant]
     Indication: PRODUCT USED FOR UNKNOWN INDICATION
  3. CALCIUM [Concomitant]
     Indication: PRODUCT USED FOR UNKNOWN INDICATION
  4. LASIX [Concomitant]
     Indication: PRODUCT USED FOR UNKNOWN INDICATION
     Dosage: LAST DOSE DUE TOMMORROW
  5. POTASSIUM [Concomitant]
     Indication: PRODUCT USED FOR UNKNOWN INDICATION
     Dosage: LAST DOSE DUE TOMMORROW
  6. HUMIRA [Suspect]
     Indication: RHEUMATOID ARTHRITIS
     Dates: start: 20100531
  7. METHOTREXATE [Concomitant]
     Indication: ARTHRITIS
  8. PRAVASTATIN [Concomitant]
     Indication: BLOOD CHOLESTEROL
  9. VITAMIN B COMPLEX [Concomitant]
     Indication: PRODUCT USED FOR UNKNOWN INDICATION
  10. VITAMIN D [Concomitant]
     Indication: PRODUCT USED FOR UNKNOWN INDICATION
     Dosage: 2 ON SAT AND SUN AND 1 EVERY OTHER DAY

REACTIONS (1)
  - INJECTION SITE HAEMATOMA [None]
